FAERS Safety Report 19001270 (Version 1)
Quarter: 2021Q1

REPORT INFORMATION
  Report Type: Spontaneous
  Country: US (occurrence: US)
  Receive Date: 20210311
  Receipt Date: 20210311
  Transmission Date: 20210420
  Serious: Yes (Other)
  Sender: FDA-Public Use
  Company Number: None

PATIENT
  Sex: Male

DRUGS (3)
  1. ALINIA [Suspect]
     Active Substance: NITAZOXANIDE
  2. AEMCOLO [Concomitant]
     Active Substance: RIFAMYCIN
  3. AEMCOLO [Suspect]
     Active Substance: RIFAMYCIN

REACTIONS (4)
  - Hypersensitivity [None]
  - Diarrhoea [None]
  - Abdominal distension [None]
  - Inflammation [None]

NARRATIVE: CASE EVENT DATE: 20210217
